FAERS Safety Report 7983219-2 (Version None)
Quarter: 2011Q4

REPORT INFORMATION
  Report Type: 
  Country: None (occurrence: None)
  Receive Date: 20111215
  Receipt Date: 20111212
  Transmission Date: 20120403
  Serious: Yes (Other)
  Sender: FDA-Public Use
  Company Number: CA-ABBOTT-11P-028-0882848-00

PATIENT
  Sex: Male
  Weight: 64.468 kg

DRUGS (4)
  1. EURO FOLIC [Concomitant]
     Indication: VITAMIN SUPPLEMENTATION
     Route: 048
  2. METHOTREXATE [Concomitant]
     Indication: ANKYLOSING SPONDYLITIS
     Route: 048
  3. HUMIRA [Suspect]
     Indication: ANKYLOSING SPONDYLITIS
     Route: 058
     Dates: start: 20080211, end: 20110101
  4. HUMIRA [Suspect]
     Dates: start: 20110101

REACTIONS (3)
  - PROCEDURAL PAIN [None]
  - FOOT FRACTURE [None]
  - FOOT DEFORMITY [None]
